FAERS Safety Report 4359263-3 (Version None)
Quarter: 2004Q2

REPORT INFORMATION
  Report Type: 
  Country: None (occurrence: None)
  Receive Date: 20040518
  Receipt Date: 20040506
  Transmission Date: 20050107
  Serious: Yes (Hospitalization)
  Sender: FDA-Public Use
  Company Number: PHBS2004JP06131

PATIENT
  Sex: Female

DRUGS (3)
  1. SANOREX [Suspect]
     Indication: OBESITY
     Dosage: 0.5MG, 1MG
     Route: 048
     Dates: start: 20040430, end: 20040501
  2. SANOREX [Suspect]
     Dates: start: 20040101
  3. COVERSYL [Suspect]

REACTIONS (5)
  - ANAPHYLACTIC SHOCK [None]
  - DRUG ERUPTION [None]
  - DYSPNOEA [None]
  - HYPOTENSION [None]
  - RASH [None]
